FAERS Safety Report 9308951 (Version 1)
Quarter: 2013Q2

REPORT INFORMATION
  Report Type: Spontaneous
  Country: CN (occurrence: CN)
  Receive Date: 20130524
  Receipt Date: 20130524
  Transmission Date: 20140414
  Serious: Yes (Death, Other)
  Sender: FDA-Public Use
  Company Number: CN-ASTRAZENECA-2013SE35749

PATIENT
  Age: 24472 Day
  Sex: Female

DRUGS (4)
  1. PROPOFOL [Suspect]
     Indication: GENERAL ANAESTHESIA
     Dosage: 2 MG/ML, ONCE
     Route: 042
     Dates: start: 20120423, end: 20120423
  2. PROPOFOL [Suspect]
     Indication: GENERAL ANAESTHESIA
     Dosage: 1.5 MG/ML
     Route: 042
     Dates: start: 20120423, end: 20120423
  3. FENTANYL [Concomitant]
     Route: 042
  4. CISATRACURIUM BESYLATE [Concomitant]
     Route: 042

REACTIONS (4)
  - Death [Fatal]
  - Blood pressure decreased [Unknown]
  - Obstructive airways disorder [Unknown]
  - Arrhythmia [Unknown]
